FAERS Safety Report 9436645 (Version 1)
Quarter: 2013Q3

REPORT INFORMATION
  Report Type: Report from Study
  Country: FR (occurrence: FR)
  Receive Date: 20130802
  Receipt Date: 20130802
  Transmission Date: 20140515
  Serious: Yes (Other)
  Sender: FDA-Public Use
  Company Number: FR-CELGENEUS-056-C4047-12043051

PATIENT
  Age: 64 Year
  Sex: Female
  Weight: 70 kg

DRUGS (14)
  1. CC-4047 [Suspect]
     Indication: PLASMA CELL MYELOMA
     Dosage: 4 MILLIGRAM
     Route: 048
     Dates: start: 20120322, end: 20120324
  2. CC-4047 [Suspect]
     Dosage: 2 MILLIGRAM
     Route: 048
     Dates: start: 20120509, end: 20120511
  3. DEXAMETHASONE [Concomitant]
     Indication: PLASMA CELL MYELOMA
     Route: 048
     Dates: start: 20120326
  4. DEXAMETHASONE [Concomitant]
     Dosage: 2.8571 MILLIGRAM
     Route: 065
  5. KARDEGIC [Concomitant]
     Indication: THROMBOSIS PROPHYLAXIS
     Dosage: 75 MILLIGRAM
     Route: 065
  6. WELLVONE [Concomitant]
     Indication: PRODUCT USED FOR UNKNOWN INDICATION
     Route: 065
  7. ZELITREX [Concomitant]
     Indication: PRODUCT USED FOR UNKNOWN INDICATION
     Route: 065
  8. BIPHOSPHONATE [Concomitant]
     Indication: PRODUCT USED FOR UNKNOWN INDICATION
     Route: 065
  9. ANTIBIOTICS [Concomitant]
     Indication: PROPHYLAXIS
     Route: 065
  10. LOW MOLECULAR WEIGHT HEPARIN [Concomitant]
     Indication: PROPHYLAXIS
     Route: 065
  11. CALTRATE D3 [Concomitant]
     Indication: PRODUCT USED FOR UNKNOWN INDICATION
     Route: 065
  12. MOPRAL [Concomitant]
     Indication: PRODUCT USED FOR UNKNOWN INDICATION
     Route: 065
  13. SPECIAFOLDINE [Concomitant]
     Indication: PRODUCT USED FOR UNKNOWN INDICATION
     Route: 065
  14. DUROGESIC [Concomitant]
     Indication: PRODUCT USED FOR UNKNOWN INDICATION
     Route: 065

REACTIONS (3)
  - Urticaria [Recovered/Resolved]
  - Infection [Recovered/Resolved]
  - Urticaria [Unknown]
